FAERS Safety Report 9276402 (Version 7)
Quarter: 2014Q2

REPORT INFORMATION
  Report Type: Spontaneous
  Country: US (occurrence: US)
  Receive Date: 20130507
  Receipt Date: 20140528
  Transmission Date: 20141212
  Serious: Yes (Life-Threatening, Hospitalization)
  Sender: FDA-Public Use
  Company Number: US-GLAXOSMITHKLINE-A1022701A

PATIENT
  Age: 65 Year
  Sex: Female

DRUGS (1)
  1. FLOLAN [Suspect]
     Indication: PULMONARY ARTERIAL HYPERTENSION
     Dosage: 19NGKM CONTINUOUS
     Route: 042
     Dates: start: 20080609

REACTIONS (12)
  - Atrial fibrillation [Recovered/Resolved]
  - Renal disorder [Recovered/Resolved]
  - Heart rate increased [Recovered/Resolved]
  - Oedema peripheral [Recovered/Resolved]
  - Sinusitis [Recovered/Resolved]
  - Malaise [Recovered/Resolved]
  - Weight increased [Recovered/Resolved]
  - Urine output decreased [Recovered/Resolved]
  - Oedema [Recovered/Resolved]
  - Cardiac disorder [Recovered/Resolved]
  - Cardiac failure [Recovered/Resolved]
  - Alopecia [Not Recovered/Not Resolved]
